FAERS Safety Report 7905807-1 (Version None)
Quarter: 2011Q4

REPORT INFORMATION
  Report Type: 
  Country: None (occurrence: None)
  Receive Date: 20111108
  Receipt Date: 20111107
  Transmission Date: 20120403
  Serious: No
  Sender: FDA-Public Use
  Company Number: 1101111-203-CC

PATIENT
  Age: 34 Year
  Sex: Female
  Weight: 87.5442 kg

DRUGS (5)
  1. HYDROXYCHLOROQUIN [Concomitant]
  2. ZYRTEC [Concomitant]
  3. ALLEGRA [Concomitant]
  4. FERREX 150 CAPSULES [Suspect]
     Indication: IRON DEFICIENCY
     Dosage: ORALLY BID
     Route: 048
  5. SINGULAIR [Concomitant]

REACTIONS (6)
  - MALAISE [None]
  - BLOOD URIC ACID INCREASED [None]
  - PRURITUS [None]
  - PRODUCT SUBSTITUTION ISSUE [None]
  - MUSCLE SPASMS [None]
  - BLOOD IRON DECREASED [None]
